FAERS Safety Report 7390330-6 (Version None)
Quarter: 2011Q2

REPORT INFORMATION
  Report Type: 
  Country: None (occurrence: None)
  Receive Date: 20110401
  Receipt Date: 20110321
  Transmission Date: 20111010
  Serious: Yes (Other)
  Sender: FDA-Public Use
  Company Number: CA-GENENTECH-315841

PATIENT

DRUGS (1)
  1. RITUXAN [Suspect]
     Indication: POLYARTHRITIS
     Dosage: UNK
     Route: 042

REACTIONS (1)
  - PULMONARY FIBROSIS [None]
